FAERS Safety Report 20618150 (Version 2)
Quarter: 2022Q3

REPORT INFORMATION
  Report Type: Spontaneous
  Country: US (occurrence: US)
  Receive Date: 20220321
  Receipt Date: 20220715
  Transmission Date: 20221027
  Serious: Yes (Hospitalization, Other)
  Sender: FDA-Public Use
  Company Number: US-PFIZER INC-202200398607

PATIENT
  Age: 74 Year
  Sex: Female

DRUGS (1)
  1. CELEBREX [Suspect]
     Active Substance: CELECOXIB
     Dosage: UNK
     Route: 048

REACTIONS (6)
  - Nephrolithiasis [Unknown]
  - Peripheral swelling [Recovering/Resolving]
  - Chromaturia [Unknown]
  - Epistaxis [Unknown]
  - Pain [Unknown]
  - Musculoskeletal stiffness [Unknown]
